FAERS Safety Report 11449090 (Version 1)
Quarter: 2015Q3

REPORT INFORMATION
  Report Type: Spontaneous
  Country: US (occurrence: US)
  Receive Date: 20150902
  Receipt Date: 20150902
  Transmission Date: 20151125
  Serious: Yes (Hospitalization, Other)
  Sender: FDA-Public Use
  Company Number: US-VERTEX PHARMACEUTICALS-2015-003515

PATIENT
  Age: 35 Year
  Sex: Male
  Weight: 85 kg

DRUGS (2)
  1. KALYDECO [Suspect]
     Active Substance: IVACAFTOR
     Indication: CYSTIC FIBROSIS
     Dosage: 150 MG, BID
     Route: 048
     Dates: start: 20120601
  2. CYSTIC FIBROSIS MEDICATIONS [Concomitant]
     Indication: CYSTIC FIBROSIS

REACTIONS (2)
  - Heat exhaustion [Recovered/Resolved with Sequelae]
  - Blood sodium decreased [Unknown]

NARRATIVE: CASE EVENT DATE: 201508
